FAERS Safety Report 23775207 (Version 1)
Quarter: 2024Q2

REPORT INFORMATION
  Report Type: Spontaneous
  Country: CA (occurrence: CA)
  Receive Date: 20240423
  Receipt Date: 20240423
  Transmission Date: 20240715
  Serious: Yes (Other)
  Sender: FDA-Public Use
  Company Number: CA-TEVA-VS-3187395

PATIENT
  Age: 47 Year
  Sex: Female

DRUGS (15)
  1. METHOTREXATE SODIUM [Suspect]
     Active Substance: METHOTREXATE SODIUM
     Indication: Crohn^s disease
     Route: 048
  2. METHOTREXATE SODIUM [Suspect]
     Active Substance: METHOTREXATE SODIUM
     Indication: Crohn^s disease
     Route: 065
  3. BUPRENORPHINE\NALOXONE [Concomitant]
     Active Substance: BUPRENORPHINE\NALOXONE
     Indication: Product used for unknown indication
     Route: 065
  4. CANDESARTAN [Concomitant]
     Active Substance: CANDESARTAN
     Indication: Product used for unknown indication
     Route: 065
  5. CIPROFLOXACIN [Concomitant]
     Active Substance: CIPROFLOXACIN
     Indication: Product used for unknown indication
     Dosage: DOSAGE FORM: NOT SPECIFIED
     Route: 065
  6. ESCITALOPRAM [Concomitant]
     Active Substance: ESCITALOPRAM OXALATE
     Indication: Product used for unknown indication
     Route: 065
  7. FLAGYL [Concomitant]
     Active Substance: METRONIDAZOLE\METRONIDAZOLE HYDROCHLORIDE
     Indication: Product used for unknown indication
     Route: 065
  8. FOLIC ACID [Concomitant]
     Active Substance: FOLIC ACID
     Indication: Product used for unknown indication
     Dosage: DOSAGE FORM: NOT SPECIFIED
     Route: 065
  9. INFLIXIMAB [Concomitant]
     Active Substance: INFLIXIMAB
     Indication: Crohn^s disease
     Route: 042
  10. INFLIXIMAB [Concomitant]
     Active Substance: INFLIXIMAB
     Indication: Crohn^s disease
     Route: 042
  11. PREDNISONE [Concomitant]
     Active Substance: PREDNISONE
     Indication: Crohn^s disease
     Route: 065
  12. PREDNISONE [Concomitant]
     Active Substance: PREDNISONE
     Indication: Crohn^s disease
     Dosage: DOSAGE FORM: NOT SPECIFIED
     Route: 065
  13. SUBOXONE [Concomitant]
     Active Substance: BUPRENORPHINE HYDROCHLORIDE\NALOXONE HYDROCHLORIDE
     Indication: Product used for unknown indication
     Dosage: DOSAGE FORM: FILM, SOLUBL
     Route: 065
  14. ACETAMINOPHEN\OXYCODONE HYDROCHLORIDE\OXYCODONE TEREPHTHALATE [Concomitant]
     Active Substance: ACETAMINOPHEN\OXYCODONE HYDROCHLORIDE\OXYCODONE TEREPHTHALATE
     Indication: Product used for unknown indication
     Route: 065
  15. BISOPROLOL [Concomitant]
     Active Substance: BISOPROLOL\BISOPROLOL FUMARATE
     Indication: Product used for unknown indication
     Route: 065

REACTIONS (4)
  - Anorectal disorder [Unknown]
  - Drug ineffective for unapproved indication [Unknown]
  - Rectal haemorrhage [Unknown]
  - Off label use [Unknown]
